FAERS Safety Report 10003847 (Version 1)
Quarter: 2014Q1

REPORT INFORMATION
  Report Type: Spontaneous
  Country: US (occurrence: US)
  Receive Date: 20140312
  Receipt Date: 20140312
  Transmission Date: 20141002
  Serious: No
  Sender: FDA-Public Use
  Company Number: US-INCYTE CORPORATION-2013IN002901

PATIENT
  Age: 51 Year
  Sex: Male

DRUGS (3)
  1. JAKAFI [Suspect]
     Indication: MYELOFIBROSIS
     Dosage: 5 MG, BID
     Route: 048
  2. DEPAKOTE [Concomitant]
  3. ALLOPURINOL [Concomitant]

REACTIONS (2)
  - Platelet count abnormal [Unknown]
  - Haematochezia [Unknown]
